FAERS Safety Report 6989839-6 (Version None)
Quarter: 2010Q3

REPORT INFORMATION
  Report Type: 
  Country: None (occurrence: None)
  Receive Date: 20100916
  Receipt Date: 20100318
  Transmission Date: 20110219
  Serious: Yes (Other)
  Sender: FDA-Public Use
  Company Number: US-PFIZER INC-2009301433

PATIENT
  Sex: Male

DRUGS (1)
  1. LYRICA [Suspect]
     Dosage: UNK

REACTIONS (6)
  - APATHY [None]
  - ASTHENIA [None]
  - DECREASED INTEREST [None]
  - FEELING ABNORMAL [None]
  - LUMBAR SPINAL STENOSIS [None]
  - RADICULOPATHY [None]
